FAERS Safety Report 4715986-5 (Version None)
Quarter: 2005Q3

REPORT INFORMATION
  Report Type: 
  Country: None (occurrence: None)
  Receive Date: 20050718
  Receipt Date: 20050627
  Transmission Date: 20060218
  Serious: Yes (Life-Threatening, Hospitalization, Disabling, Other)
  Sender: FDA-Public Use
  Company Number: US-GLAXOSMITHKLINE-A0564610A

PATIENT
  Age: 67 Year
  Sex: Male
  Weight: 85 kg

DRUGS (8)
  1. VALTREX [Suspect]
     Dosage: 1G THREE TIMES PER DAY
     Route: 048
     Dates: start: 20050620, end: 20050623
  2. RAPAMUNE [Suspect]
     Dosage: 3MG IN THE MORNING
  3. ZETIA [Concomitant]
     Dosage: 10MG PER DAY
  4. CELLCEPT [Concomitant]
     Dosage: 500MG TWICE PER DAY
  5. LOPRESSOR [Concomitant]
     Indication: HYPERTENSION
     Dosage: 25MG TWICE PER DAY
  6. NEURONTIN [Concomitant]
     Indication: NEUROPATHY PERIPHERAL
     Dosage: 300MG THREE TIMES PER DAY
     Dates: start: 20050620
  7. MAGNESIUM OXIDE [Concomitant]
     Dosage: 400MG PER DAY
  8. LISINOPRIL [Concomitant]
     Indication: HYPERTENSION
     Dosage: 20MG TWICE PER DAY

REACTIONS (8)
  - ANURIA [None]
  - ASTHENIA [None]
  - BLOOD CREATININE INCREASED [None]
  - DRUG INTERACTION [None]
  - HYPERSENSITIVITY [None]
  - OEDEMA [None]
  - RASH [None]
  - RENAL FAILURE [None]
